FAERS Safety Report 7310002-3 (Version None)
Quarter: 2011Q1

REPORT INFORMATION
  Report Type: 
  Country: None (occurrence: None)
  Receive Date: 20110224
  Receipt Date: 20100830
  Transmission Date: 20110831
  Serious: No
  Sender: FDA-Public Use
  Company Number: US-BAYER-201035213NA

PATIENT
  Age: 47 Year
  Sex: Female

DRUGS (2)
  1. MIRENA [Suspect]
     Indication: MENORRHAGIA
     Dosage: 20 MCG/24HR, UNK
     Route: 015
  2. MIRENA [Suspect]
     Dosage: 20 MCG/24HR, UNK
     Route: 015

REACTIONS (6)
  - APHASIA [None]
  - METRORRHAGIA [None]
  - PROCEDURAL PAIN [None]
  - COLD SWEAT [None]
  - HYPOTENSION [None]
  - DEVICE BREAKAGE [None]
